FAERS Safety Report 5508731-7 (Version None)
Quarter: 2007Q4

REPORT INFORMATION
  Report Type: 
  Country: None (occurrence: None)
  Receive Date: 20071031
  Receipt Date: 20070605
  Transmission Date: 20080405
  Serious: No
  Sender: FDA-Public Use
  Company Number: 2007PV032996

PATIENT
  Age: 38 Year

DRUGS (4)
  1. SYMLIN [Suspect]
     Indication: DIABETES MELLITUS
     Dosage: 30 MCG;SC ; 45 MCG;SC ; 60 MCG;SC
     Route: 058
     Dates: start: 20070101
  2. LANTUS [Concomitant]
  3. NOVOLOG [Concomitant]
  4. ORAL ANTIDIABETICS [Concomitant]

REACTIONS (7)
  - DECREASED APPETITE [None]
  - INCREASED APPETITE [None]
  - MALAISE [None]
  - NAUSEA [None]
  - WAIST CIRCUMFERENCE INCREASED [None]
  - WEIGHT DECREASED [None]
  - WEIGHT INCREASED [None]
